FAERS Safety Report 16157451 (Version 1)
Quarter: 2019Q2

REPORT INFORMATION
  Report Type: Spontaneous
  Country: US (occurrence: US)
  Receive Date: 20190404
  Receipt Date: 20190404
  Transmission Date: 20190711
  Serious: No
  Sender: FDA-Public Use
  Company Number: US-PFIZER INC-2019140836

PATIENT
  Age: 6 Year
  Sex: Male

DRUGS (1)
  1. GENOTROPIN MQ [Suspect]
     Active Substance: SOMATROPIN
     Dosage: 1.2 MG, DAILY (1.2MG MINIQUICK)
     Dates: start: 201607, end: 201608

REACTIONS (3)
  - Condition aggravated [Unknown]
  - Eczema [Not Recovered/Not Resolved]
  - Skin disorder [Unknown]
